FAERS Safety Report 4511131-X (Version None)
Quarter: 2004Q4

REPORT INFORMATION
  Report Type: 
  Country: None (occurrence: None)
  Receive Date: 20041012
  Receipt Date: 20040614
  Transmission Date: 20050328
  Serious: No
  Sender: FDA-Public Use
  Company Number: PHEH2004US06489

PATIENT
  Age: 50 Year
  Sex: Female

DRUGS (5)
  1. ELIDEL [Suspect]
     Indication: PRURITUS
     Dosage: ONCE/SINGLE, TOPICAL
     Route: 061
     Dates: start: 20040614
  2. XANAX [Concomitant]
  3. NEURONTIN [Concomitant]
  4. REMERON [Concomitant]
  5. NEXIUM [Concomitant]

REACTIONS (1)
  - CONDITION AGGRAVATED [None]
